FAERS Safety Report 7112997-X (Version None)
Quarter: 2010Q4

REPORT INFORMATION
  Report Type: 
  Country: None (occurrence: None)
  Receive Date: 20101119
  Receipt Date: 20100930
  Transmission Date: 20110411
  Serious: No
  Sender: FDA-Public Use
  Company Number: US-ASTRAZENECA-2010SE46250

PATIENT
  Age: 20236 Day
  Sex: Male
  Weight: 113.4 kg

DRUGS (1)
  1. VIMOVO [Suspect]
     Dosage: 500/20 ONCE
     Route: 048
     Dates: start: 20100929

REACTIONS (6)
  - ABDOMINAL PAIN UPPER [None]
  - DIARRHOEA [None]
  - FLATULENCE [None]
  - HEADACHE [None]
  - HYPERHIDROSIS [None]
  - VOMITING [None]
